FAERS Safety Report 7434481-6 (Version None)
Quarter: 2011Q2

REPORT INFORMATION
  Report Type: 
  Country: None (occurrence: None)
  Receive Date: 20110420
  Receipt Date: 20110420
  Transmission Date: 20111010
  Serious: Yes (Hospitalization)
  Sender: FDA-Public Use
  Company Number: None

PATIENT
  Age: 10 Year
  Sex: Male
  Weight: 61.8 kg

DRUGS (6)
  1. DECADRON [Concomitant]
  2. LAPATINIB [Suspect]
     Indication: EPENDYMOMA
     Dosage: 1375 MG QAM AND QPM 28 DAYS PO
     Route: 048
     Dates: start: 20110317, end: 20110413
  3. BEVACIZUMAB 400 MG/VIAL GENENTECH [Suspect]
     Indication: EPENDYMOMA
     Dosage: 620 MG IN 100 ML 0.9 NACL EVERY 2 WEEKS IV
     Route: 042
     Dates: start: 20110317, end: 20110331
  4. IMODIUM [Concomitant]
  5. ATIVAN [Concomitant]
  6. ZOFRAN [Concomitant]

REACTIONS (11)
  - ATAXIA [None]
  - VISION BLURRED [None]
  - ALANINE AMINOTRANSFERASE INCREASED [None]
  - NERVOUS SYSTEM DISORDER [None]
  - DIPLOPIA [None]
  - HEADACHE [None]
  - HEARING IMPAIRED [None]
  - TINNITUS [None]
  - MUSCULAR WEAKNESS [None]
  - NAUSEA [None]
  - NEOPLASM MALIGNANT [None]
